FAERS Safety Report 10390799 (Version 1)
Quarter: 2014Q3

REPORT INFORMATION
  Report Type: Spontaneous
  Country: US (occurrence: None)
  Receive Date: 20140815
  Receipt Date: 20140815
  Transmission Date: 20150326
  Serious: Yes (Death, Hospitalization)
  Sender: FDA-Public Use
  Company Number: None

PATIENT
  Age: 12 Year
  Sex: Male
  Weight: 35 kg

DRUGS (6)
  1. CYTARABINE. [Suspect]
     Active Substance: CYTARABINE
     Dates: end: 20140627
  2. DAUNORUBICIN [Suspect]
     Active Substance: DAUNORUBICIN
     Dates: end: 20140718
  3. PEG-L-ASPARAGINASE (K-H) [Suspect]
     Active Substance: PEGASPARGASE
     Dosage: 2950 UNIT
     Dates: end: 20140630
  4. PREDNISONE. [Suspect]
     Active Substance: PREDNISONE
     Dates: end: 20140725
  5. VINCRISTINE SULFATE. [Suspect]
     Active Substance: VINCRISTINE SULFATE
     Dates: end: 20140718
  6. METHOTREXATE [Suspect]
     Active Substance: METHOTREXATE
     Dates: end: 20140725

REACTIONS (9)
  - Renal failure acute [None]
  - Candida infection [None]
  - Haemodialysis [None]
  - Tumour lysis syndrome [None]
  - Respiratory failure [None]
  - Acute respiratory distress syndrome [None]
  - Pancytopenia [None]
  - Bacillus infection [None]
  - Sepsis [None]

NARRATIVE: CASE EVENT DATE: 20140723
